FAERS Safety Report 8910856 (Version 2)
Quarter: 2012Q4

REPORT INFORMATION
  Report Type: 
  Country: JP (occurrence: JP)
  Receive Date: 20121116
  Receipt Date: 20121122
  Transmission Date: 20130627
  Serious: Yes (Hospitalization)
  Sender: FDA-Public Use
  Company Number: JP-AMGEN-JPNSP2012072021

PATIENT
  Age: 82 Year
  Sex: Male
  Weight: 59 kg

DRUGS (11)
  1. VECTIBIX [Suspect]
     Indication: COLORECTAL CANCER
     Dosage: UNK UNK, UNK
     Route: 041
  2. VECTIBIX [Suspect]
     Dosage: 396 mg, q3wk
     Route: 041
     Dates: start: 20120601, end: 20120622
  3. IRINOTECAN HYDROCHLORIDE [Suspect]
     Indication: COLORECTAL CANCER
     Dosage: UNK UNK, UNK
     Route: 041
     Dates: start: 20120529, end: 20120622
  4. IRINOTECAN HYDROCHLORIDE [Suspect]
     Dosage: 255 mg, UNK
     Route: 041
     Dates: start: 20120622, end: 20120622
  5. OXALIPLATIN [Concomitant]
     Indication: COLORECTAL CANCER
     Dosage: UNK UNK, UNK
     Route: 041
     Dates: start: 20120416, end: 20120416
  6. OXALIPLATIN [Concomitant]
     Dosage: UNK
     Route: 041
     Dates: start: 20120601, end: 20120601
  7. FLUOROURACIL [Concomitant]
     Indication: COLORECTAL CANCER
     Dosage: UNK UNK, UNK
     Route: 040
     Dates: start: 20120416, end: 20120416
  8. FLUOROURACIL [Concomitant]
     Dosage: UNK
     Route: 042
     Dates: start: 20120601, end: 20120601
  9. CALCIUM LEVOFOLINATE [Concomitant]
     Indication: COLORECTAL CANCER
     Dosage: UNK UNK, UNK
     Route: 041
     Dates: start: 20120416, end: 20120416
  10. CALCIUM LEVOFOLINATE [Concomitant]
     Dosage: UNK
     Route: 041
     Dates: start: 20120601, end: 20120601
  11. METHYLPREDNISOLONE SODIUM SUCCINATE [Concomitant]
     Dosage: 125 mg, UNK

REACTIONS (5)
  - Arrhythmia [Recovered/Resolved]
  - Malaise [Recovered/Resolved]
  - Chest discomfort [Recovered/Resolved]
  - Cold sweat [Recovered/Resolved]
  - Stomatitis [Recovered/Resolved]
